FAERS Safety Report 5060360-8 (Version None)
Quarter: 2006Q3

REPORT INFORMATION
  Report Type: 
  Country: None (occurrence: None)
  Receive Date: 20060720
  Receipt Date: 20060707
  Transmission Date: 20061208
  Serious: Yes (Other)
  Sender: FDA-Public Use
  Company Number: 2006087097

PATIENT
  Age: 53 Year
  Sex: Male

DRUGS (5)
  1. LYRICA [Suspect]
     Dates: end: 20060706
  2. DEXAMFETAMINE (DEXAMFETAMINE) [Concomitant]
  3. WELLBUTRIN SR [Concomitant]
  4. SYMBYAX (FLUOXETINE HYDROCHLORIDE, OLANZAPINE) [Concomitant]
  5. EFFEXOR XR [Concomitant]

REACTIONS (3)
  - DYSARTHRIA [None]
  - HYPOMANIA [None]
  - SPEECH DISORDER [None]
